FAERS Safety Report 5839488-8 (Version None)
Quarter: 2008Q3

REPORT INFORMATION
  Report Type: 
  Country: None (occurrence: None)
  Receive Date: 20080807
  Receipt Date: 20080731
  Transmission Date: 20090109
  Serious: Yes (Life-Threatening, Hospitalization)
  Sender: FDA-Public Use
  Company Number: 2008JP002559

PATIENT
  Age: 39 Year
  Sex: Male
  Weight: 65 kg

DRUGS (17)
  1. TACROLIMUS [Suspect]
     Indication: RENAL TRANSPLANT
     Dosage: 5 MG, BID, ORAL; 4 MG, BID, ORAL; 3 MG, BID, ORAL
     Route: 048
     Dates: start: 20080509, end: 20080516
  2. TACROLIMUS [Suspect]
     Indication: RENAL TRANSPLANT
     Dosage: 5 MG, BID, ORAL; 4 MG, BID, ORAL; 3 MG, BID, ORAL
     Route: 048
     Dates: start: 20080517, end: 20080526
  3. TACROLIMUS [Suspect]
     Indication: RENAL TRANSPLANT
     Dosage: 5 MG, BID, ORAL; 4 MG, BID, ORAL; 3 MG, BID, ORAL
     Route: 048
     Dates: start: 20080527, end: 20080530
  4. CELLCEPT [Concomitant]
  5. GASTER PER ORAL NOS [Concomitant]
  6. METISONE (METHYLPREDNISOLONE) PER ORAL NOS [Concomitant]
  7. LASIX (FUROSEMIDE) PER ORAL NOS [Concomitant]
  8. CIPROXIN (CIPROFLOXACIN) PER ORAL NOS [Concomitant]
  9. ZEFFIX (LAMIVUDINE) PER ORAL NOS [Concomitant]
  10. VALCYTE (VALGANCICLOVIR HYDROCHLORIDE) PER ORAL NOS [Concomitant]
  11. URSO (URSODEOXYCHOLIC ACID) PER ORAL NOS [Concomitant]
  12. CALCIUM CARBONATE PER ORAL NOS [Concomitant]
  13. FOLIC ACID (FOLIC ACID) PER ORAL NOS [Concomitant]
  14. FERALL (ASCORBIC ACID, FOLIC ACID, FERROUS FUMARATE) PER ORAL NOS [Concomitant]
  15. ATIVAN (LORAZEPAM) PER ORAL NOS [Concomitant]
  16. IMODIUM (LOPERAMIDE HYDROCHLORIDE) PER ORAL NOS [Concomitant]
  17. TINTEN PER ORAL NOS [Concomitant]

REACTIONS (15)
  - ABDOMINAL DISTENSION [None]
  - ABDOMINAL PAIN LOWER [None]
  - COMPARTMENT SYNDROME [None]
  - HAEMATOMA INFECTION [None]
  - HAEMOGLOBIN DECREASED [None]
  - HAEMORRHAGE [None]
  - HYPOTENSION [None]
  - LOSS OF CONSCIOUSNESS [None]
  - OLIGURIA [None]
  - PERIRENAL HAEMATOMA [None]
  - PLEURAL EFFUSION [None]
  - PSEUDOMONAS INFECTION [None]
  - SHOCK [None]
  - WOUND HAEMORRHAGE [None]
  - WOUND SECRETION [None]
